FAERS Safety Report 8300551-3 (Version None)
Quarter: 2012Q2

REPORT INFORMATION
  Report Type: 
  Country: None (occurrence: None)
  Receive Date: 20120418
  Receipt Date: 20120418
  Transmission Date: 20120825
  Serious: No
  Sender: FDA-Public Use
  Company Number: None

PATIENT
  Age: 52 Year
  Sex: Male

DRUGS (10)
  1. ATORVASTATIN [Concomitant]
  2. ABACAVIR SULFATE AND LAMIVUDINE [Concomitant]
  3. RALTEGRAVIR [Concomitant]
  4. TENOFOVIR [Concomitant]
  5. METFORMIN HCL [Concomitant]
  6. LEVETIRACETAM [Concomitant]
  7. EGRIFTA [Suspect]
     Indication: LIPODYSTROPHY ACQUIRED
     Dosage: TESAMORELIN (EGRIFTA) 2MG DAILY SQ
     Route: 058
     Dates: start: 20111201, end: 20120401
  8. LOSARTAN POTASSIUM [Concomitant]
  9. HYDROCHLOROTHIAZIDE [Concomitant]
  10. ETRAVIRINE [Concomitant]

REACTIONS (2)
  - UNEVALUABLE EVENT [None]
  - NO THERAPEUTIC RESPONSE [None]
